FAERS Safety Report 23994497 (Version 1)
Quarter: 2024Q2

REPORT INFORMATION
  Report Type: Spontaneous
  Country: US (occurrence: None)
  Receive Date: 20240619
  Receipt Date: 20240619
  Transmission Date: 20240716
  Serious: Yes (Other)
  Sender: FDA-Public Use
  Company Number: None

PATIENT
  Age: 58 Year
  Sex: Female
  Weight: 63 kg

DRUGS (2)
  1. DUPIXENT [Suspect]
     Active Substance: DUPILUMAB
     Indication: Dermatitis atopic
     Dosage: OTHER FREQUENCY : BI-WEEKLY;?
     Route: 030
     Dates: start: 20240418, end: 20240502
  2. ESTRADIOL [Concomitant]
     Active Substance: ESTRADIOL

REACTIONS (9)
  - Migraine [None]
  - Arthralgia [None]
  - Fatigue [None]
  - Paraesthesia [None]
  - Flushing [None]
  - Burning sensation [None]
  - Eye irritation [None]
  - Eye pain [None]
  - Alopecia [None]

NARRATIVE: CASE EVENT DATE: 20240502
